FAERS Safety Report 4821603-6 (Version None)
Quarter: 2005Q4

REPORT INFORMATION
  Report Type: 
  Country: None (occurrence: None)
  Receive Date: 20051103
  Receipt Date: 20051103
  Transmission Date: 20060501
  Serious: Yes (Death, Life-Threatening, Hospitalization)
  Sender: FDA-Public Use
  Company Number: None

PATIENT
  Age: 95 Year
  Sex: Male
  Weight: 58.9676 kg

DRUGS (4)
  1. LEVAQUIN [Suspect]
     Indication: BRONCHITIS
     Route: 042
     Dates: start: 20040101, end: 20050924
  2. LEVAQUIN [Suspect]
     Indication: PNEUMONIA BACTERIAL
     Route: 042
     Dates: start: 20040101, end: 20050924
  3. LEVAQUIN [Suspect]
     Indication: BRONCHITIS
     Route: 048
     Dates: start: 20050203
  4. LEVAQUIN [Suspect]
     Indication: PNEUMONIA BACTERIAL
     Route: 048
     Dates: start: 20050203

REACTIONS (5)
  - AGITATION [None]
  - ASTHENIA [None]
  - CONTRAINDICATION TO MEDICAL TREATMENT [None]
  - DEMENTIA [None]
  - HALLUCINATION [None]
